FAERS Safety Report 24823385 (Version 3)
Quarter: 2025Q1

REPORT INFORMATION
  Report Type: Spontaneous
  Country: FR (occurrence: FR)
  Receive Date: 20250109
  Receipt Date: 20250130
  Transmission Date: 20250409
  Serious: Yes (Other)
  Sender: TAKEDA
  Company Number: FR-INCYTE CORPORATION-2025IN000082

PATIENT
  Age: 49 Year
  Sex: Male

DRUGS (1)
  1. ICLUSIG [Suspect]
     Active Substance: PONATINIB HYDROCHLORIDE
     Indication: Chronic myeloid leukaemia
     Dates: start: 20240704, end: 20241213

REACTIONS (4)
  - Pleuropericarditis [Recovered/Resolved]
  - Sinusitis [Unknown]
  - Bronchitis [Unknown]
  - Ear, nose and throat infection [Unknown]

NARRATIVE: CASE EVENT DATE: 20241201
